FAERS Safety Report 9839313 (Version 1)
Quarter: 2014Q1

REPORT INFORMATION
  Report Type: Report from Study
  Country: DE (occurrence: DE)
  Receive Date: 20140123
  Receipt Date: 20140123
  Transmission Date: 20141002
  Serious: No
  Sender: FDA-Public Use
  Company Number: PHHY2014DE008085

PATIENT
  Sex: Female

DRUGS (3)
  1. AMN107 [Suspect]
     Indication: CHRONIC MYELOID LEUKAEMIA
     Dosage: 600 MG, QD
     Route: 048
     Dates: start: 20130417
  2. L-THYROXIN [Concomitant]
     Dosage: 25 UG, UNK
     Dates: start: 20131114
  3. L-THYROXIN [Concomitant]
     Dosage: 100 UG, UNK
     Dates: start: 20131217

REACTIONS (1)
  - Dyspnoea [Recovered/Resolved]
